FAERS Safety Report 8403138-7 (Version None)
Quarter: 2012Q2

REPORT INFORMATION
  Report Type: 
  Country: None (occurrence: None)
  Receive Date: 20120601
  Receipt Date: 20120530
  Transmission Date: 20120825
  Serious: No
  Sender: FDA-Public Use
  Company Number: US-ELI_LILLY_AND_COMPANY-US201205005297

PATIENT
  Weight: 94.785 kg

DRUGS (10)
  1. CIALIS [Suspect]
     Indication: ERECTILE DYSFUNCTION
     Dosage: 10 MG, UNK
     Dates: start: 20120401
  2. ALBUTEROL [Concomitant]
  3. INSULIN [Concomitant]
  4. METFORMIN HCL [Concomitant]
  5. CIALIS [Suspect]
     Dosage: 2.5 MG, QD
     Dates: end: 20120514
  6. RESTORIL [Concomitant]
  7. LORATADINE [Concomitant]
  8. KETOCONAZOLE [Concomitant]
  9. CIALIS [Suspect]
     Dosage: 5 MG, UNK
     Dates: end: 20120514
  10. COZAAR [Concomitant]

REACTIONS (2)
  - NAUSEA [None]
  - VISUAL IMPAIRMENT [None]
